FAERS Safety Report 18196397 (Version 3)
Quarter: 2020Q4

REPORT INFORMATION
  Report Type: Report from Study
  Country: None (occurrence: US)
  Receive Date: 20200825
  Receipt Date: 20201208
  Transmission Date: 20210113
  Serious: Yes (Hospitalization, Disabling, Other)
  Sender: FDA-Public Use
  Company Number: US-ABBVIE-20K-163-3535593-00

PATIENT
  Age: 62 Year
  Sex: Male
  Weight: 5.74 kg

DRUGS (1)
  1. HUMIRA [Suspect]
     Active Substance: ADALIMUMAB
     Indication: RHEUMATOID ARTHRITIS
     Route: 058
     Dates: start: 2018, end: 202006

REACTIONS (11)
  - Coccidioidomycosis [Not Recovered/Not Resolved]
  - Haemoptysis [Unknown]
  - Oesophageal rupture [Recovered/Resolved]
  - Pulmonary mass [Not Recovered/Not Resolved]
  - Internal haemorrhage [Unknown]
  - Pneumonia aspiration [Recovering/Resolving]
  - Chest pain [Not Recovered/Not Resolved]
  - Haematemesis [Unknown]
  - Amnesia [Not Recovered/Not Resolved]
  - Oxygen saturation decreased [Not Recovered/Not Resolved]
  - Pneumonia [Recovered/Resolved]

NARRATIVE: CASE EVENT DATE: 2020
